FAERS Safety Report 8117028-0 (Version None)
Quarter: 2012Q1

REPORT INFORMATION
  Report Type: 
  Country: None (occurrence: None)
  Receive Date: 20120131
  Receipt Date: 20120113
  Transmission Date: 20120608
  Serious: Yes (Hospitalization)
  Sender: FDA-Public Use
  Company Number: 2011100037

PATIENT
  Age: 45 Year
  Sex: Male

DRUGS (21)
  1. INEGY(EZETIMIBE, SIMVASTATIN) [Concomitant]
  2. DIOVAN [Concomitant]
  3. ASPIRIN [Concomitant]
  4. OMEGA-3 ACID ETHYL ESTERS(OMEGA-3 ACID ETHYL ESTERS) [Concomitant]
  5. ALEGLITAZAR (ALEGLITAZER) [Suspect]
     Indication: CARDIOVASCULAR EVENT PROPHYLAXIS
     Dosage: SEE IMAGE
     Route: 048
     Dates: start: 20110215
  6. ALEGLITAZAR (ALEGLITAZER) [Suspect]
     Indication: CARDIOVASCULAR EVENT PROPHYLAXIS
     Dosage: SEE IMAGE
     Route: 048
     Dates: start: 20110215
  7. AMLODIPINE [Concomitant]
  8. LIPROLOG  (LISPRO INSULIN) [Concomitant]
  9. ALISKIREN (ALISKIREN FUMARATE) [Concomitant]
  10. SPIRONOLACTONE [Suspect]
     Indication: PRODUCT USED FOR UNKNOWN INDICATION
     Dosage: 1 DOSAGE FORMS (1 DOSAGE FORMS, 1 IN 1 D)
     Dates: start: 20110504
  11. ALLOPURINOL [Concomitant]
  12. HYDROCRLOROTHIAZIDE (HYDROCHLOROTHIAZIDE) [Concomitant]
  13. CATAPRESSAN (CLONIDINE HYDROCHLORIDE) [Concomitant]
  14. COLOPIDOGREL BISULFATE(CLOPIDOGREL BISULFATE) [Concomitant]
  15. PANTOPRAZOLE [Concomitant]
  16. METFORMIN HCL [Concomitant]
  17. NITROLINGUAL (NITROGLYCERIN) [Concomitant]
  18. LEVEMIR [Concomitant]
  19. VILDAGLIPTIN (VILDAGLIPTIN) [Concomitant]
  20. TORSEMIDE [Suspect]
     Indication: PRODUCT USED FOR UNKNOWN INDICATION
     Dosage: 10 MG (10 MG,L IN 1 D)
     Dates: start: 20100108, end: 20110509
  21. NEBILET(NEBIVOLOI HYDROCHLORIDE) [Concomitant]

REACTIONS (15)
  - INFLUENZA [None]
  - VOMITING [None]
  - NAUSEA [None]
  - HEADACHE [None]
  - GLYCOSYLATED HAEMOGLOBIN INCREASED [None]
  - VERTIGO [None]
  - TREATMENT NONCOMPLIANCE [None]
  - HYPERTENSIVE CRISIS [None]
  - HYPOTENSION [None]
  - FLUID INTAKE REDUCED [None]
  - DIZZINESS [None]
  - HYPERKALAEMIA [None]
  - CAROTID ARTERY STENOSIS [None]
  - HYPERGLYCAEMIA [None]
  - HYPERHIDROSIS [None]
